FAERS Safety Report 17646715 (Version 1)
Quarter: 2020Q2

REPORT INFORMATION
  Report Type: Spontaneous
  Country: FR (occurrence: FR)
  Receive Date: 20200408
  Receipt Date: 20200408
  Transmission Date: 20200713
  Serious: Yes (Life-Threatening, Hospitalization, Other)
  Sender: FDA-Public Use
  Company Number: FR-AMGEN-FRASP2020056872

PATIENT
  Age: 66 Year
  Sex: Female
  Weight: 70 kg

DRUGS (4)
  1. FENOFIBRATE. [Concomitant]
     Active Substance: FENOFIBRATE
     Indication: PRODUCT USED FOR UNKNOWN INDICATION
     Dosage: 160 MILLIGRAM, QD
     Route: 048
  2. PACLITAXEL SANDOZ [Suspect]
     Active Substance: PACLITAXEL
     Dosage: 138 MILLIGRAM, QWK
     Route: 042
     Dates: start: 20191127, end: 20200102
  3. PACLITAXEL SANDOZ [Suspect]
     Active Substance: PACLITAXEL
     Indication: BREAST CANCER METASTATIC
     Dosage: 138 MILLIGRAM, QWK
     Route: 042
     Dates: start: 20191030, end: 20191106
  4. XGEVA [Suspect]
     Active Substance: DENOSUMAB
     Indication: MUSCULOSKELETAL DISORDER PROPHYLAXIS
     Dosage: 120 MILLIGRAM, QMO
     Route: 058
     Dates: start: 20191001

REACTIONS (1)
  - Interstitial lung disease [Recovering/Resolving]

NARRATIVE: CASE EVENT DATE: 20191215
